FAERS Safety Report 7040569-4 (Version None)
Quarter: 2010Q4

REPORT INFORMATION
  Report Type: 
  Country: None (occurrence: None)
  Receive Date: 20101012
  Receipt Date: 20101007
  Transmission Date: 20110411
  Serious: Yes (Death)
  Sender: FDA-Public Use
  Company Number: US-GILEAD-2010-0031663

PATIENT
  Sex: Male
  Weight: 108.05 kg

DRUGS (21)
  1. LETAIRIS [Suspect]
     Indication: PULMONARY ARTERIAL HYPERTENSION
     Route: 048
     Dates: start: 20091201
  2. OXYGEN [Concomitant]
  3. FUROSEMIDE [Concomitant]
  4. METOPROLOL TARTRATE [Concomitant]
  5. ASPIRIN [Concomitant]
  6. PLAVIX [Concomitant]
  7. SPIRIVA [Concomitant]
  8. ISOSORBIDE [Concomitant]
  9. NITROGLYCERIN [Concomitant]
  10. ALLOPURINOL [Concomitant]
  11. RANITIDINE [Concomitant]
  12. DELSYM [Concomitant]
  13. SUCRALFATE [Concomitant]
  14. PRAVASTATIN [Concomitant]
  15. SYMBICORT [Concomitant]
  16. KLOR-CON [Concomitant]
  17. CARBONYL IRON [Concomitant]
  18. PROAIR HFA [Concomitant]
  19. PROTONIX [Concomitant]
  20. PREDNISONE [Concomitant]
  21. DOXYCYCLINE [Concomitant]

REACTIONS (1)
  - CORONARY ARTERY DISEASE [None]
